FAERS Safety Report 5083719-1 (Version None)
Quarter: 2006Q3

REPORT INFORMATION
  Report Type: 
  Country: None (occurrence: None)
  Receive Date: 20060818
  Receipt Date: 20060803
  Transmission Date: 20061208
  Serious: Yes (Hospitalization, Other)
  Sender: FDA-Public Use
  Company Number: US-AMGEN-US189018

PATIENT
  Sex: Female

DRUGS (13)
  1. ENBREL [Suspect]
     Indication: RHEUMATOID ARTHRITIS
     Route: 058
     Dates: start: 20000101
  2. METHOTREXATE [Concomitant]
  3. BETAPACE [Concomitant]
  4. FOLIC ACID [Concomitant]
  5. PREDNISONE [Concomitant]
  6. VANCOMYCIN [Concomitant]
  7. PAXIL [Concomitant]
  8. LIPITOR [Concomitant]
  9. NEXIUM [Concomitant]
  10. LIDODERM PATCH (ENDO PHARMACEUTICALS) [Concomitant]
  11. OXYCODONE HCL [Concomitant]
  12. CALTRATE [Concomitant]
  13. CENTRUM SILVER [Concomitant]

REACTIONS (13)
  - CLOSTRIDIUM DIFFICILE COLITIS [None]
  - CONDITION AGGRAVATED [None]
  - DEHYDRATION [None]
  - DIARRHOEA [None]
  - DISORIENTATION [None]
  - HIATUS HERNIA [None]
  - INJECTION SITE PAIN [None]
  - INTERVERTEBRAL DISC DISORDER [None]
  - LUNG DISORDER [None]
  - ORAL INTAKE REDUCED [None]
  - PERICARDITIS [None]
  - RHEUMATOID ARTHRITIS [None]
  - SEDATION [None]
